FAERS Safety Report 19280405 (Version 1)
Quarter: 2021Q2

REPORT INFORMATION
  Report Type: Spontaneous
  Country: US (occurrence: US)
  Receive Date: 20210521
  Receipt Date: 20210521
  Transmission Date: 20210717
  Serious: No
  Sender: FDA-Public Use
  Company Number: US-BAUSCH-BL-2021-017545

PATIENT
  Age: 72 Year
  Sex: Male

DRUGS (5)
  1. ALLEGRA [Concomitant]
     Active Substance: FEXOFENADINE HYDROCHLORIDE
     Indication: PRODUCT USED FOR UNKNOWN INDICATION
  2. MULTIVITAMINS [Concomitant]
     Active Substance: VITAMINS
     Indication: PRODUCT USED FOR UNKNOWN INDICATION
  3. OFLOXACIN OTIC [Suspect]
     Active Substance: OFLOXACIN
     Indication: PROPHYLAXIS
     Dosage: APPROXIMATELY 3 WEEKS AGO, 5 DROPS IN THE AFFECTED EAR TWICE DAILY
     Route: 001
     Dates: start: 202104, end: 202105
  4. OFLOXACIN OTIC [Suspect]
     Active Substance: OFLOXACIN
     Dosage: APPROXIMATELY 3 WEEKS AGO, 5 DROPS IN THE AFFECTED EAR TWICE DAILY
     Route: 001
     Dates: start: 202105
  5. SINGULAIR [Concomitant]
     Active Substance: MONTELUKAST SODIUM
     Indication: PRODUCT USED FOR UNKNOWN INDICATION

REACTIONS (3)
  - Erythema [Unknown]
  - Ear discomfort [Not Recovered/Not Resolved]
  - Middle ear effusion [Unknown]

NARRATIVE: CASE EVENT DATE: 2021
